FAERS Safety Report 20686500 (Version 1)
Quarter: 2022Q2

REPORT INFORMATION
  Report Type: Other
  Country: US (occurrence: None)
  Receive Date: 20220407
  Receipt Date: 20220407
  Transmission Date: 20220720
  Serious: Yes (Other)
  Sender: FDA-Public Use
  Company Number: US-ROCHE-3065604

PATIENT
  Age: 51 Year
  Sex: Female
  Weight: 90.982 kg

DRUGS (3)
  1. XOLAIR [Suspect]
     Active Substance: OMALIZUMAB
     Indication: Urticaria
     Route: 065
  2. XOLAIR [Suspect]
     Active Substance: OMALIZUMAB
  3. XOLAIR [Suspect]
     Active Substance: OMALIZUMAB

REACTIONS (6)
  - Depression [Unknown]
  - Hypothyroidism [Unknown]
  - Obsessive-compulsive disorder [Unknown]
  - Fibromyalgia [Unknown]
  - Lyme disease [Unknown]
  - Breast cyst [Unknown]

NARRATIVE: CASE EVENT DATE: 20220317
